FAERS Safety Report 21959332 (Version 1)
Quarter: 2023Q1

REPORT INFORMATION
  Report Type: Report from Study
  Country: PH (occurrence: PH)
  Receive Date: 20230206
  Receipt Date: 20230206
  Transmission Date: 20230418
  Serious: Yes (Other)
  Sender: FDA-Public Use
  Company Number: PH-AstraZeneca-2023A023391

PATIENT
  Age: 39 Year
  Sex: Female

DRUGS (16)
  1. FAM-TRASTUZUMAB DERUXTECAN-NXKI [Suspect]
     Active Substance: FAM-TRASTUZUMAB DERUXTECAN-NXKI
     Indication: HER2 positive breast cancer
     Dosage: 5.4 MG/KG, ONCE EVERY 3 WK
     Route: 042
     Dates: start: 20220915, end: 20220915
  2. FAM-TRASTUZUMAB DERUXTECAN-NXKI [Suspect]
     Active Substance: FAM-TRASTUZUMAB DERUXTECAN-NXKI
     Dosage: 5.4 MG/KG, ONCE EVERY 3 WK
     Route: 042
     Dates: start: 20221006, end: 20221006
  3. FAM-TRASTUZUMAB DERUXTECAN-NXKI [Suspect]
     Active Substance: FAM-TRASTUZUMAB DERUXTECAN-NXKI
     Dosage: 5.4 MG/KG, ONCE EVERY 3 WK
     Route: 042
     Dates: start: 20221027, end: 20221027
  4. FAM-TRASTUZUMAB DERUXTECAN-NXKI [Suspect]
     Active Substance: FAM-TRASTUZUMAB DERUXTECAN-NXKI
     Dosage: 5.4 MG/KG, ONCE EVERY 3 WK
     Route: 065
     Dates: start: 20221117, end: 20221117
  5. FAM-TRASTUZUMAB DERUXTECAN-NXKI [Suspect]
     Active Substance: FAM-TRASTUZUMAB DERUXTECAN-NXKI
     Dosage: 5 MG/KG, ONCE EVERY 3 WK
     Route: 042
     Dates: start: 20221208, end: 20221208
  6. FAM-TRASTUZUMAB DERUXTECAN-NXKI [Suspect]
     Active Substance: FAM-TRASTUZUMAB DERUXTECAN-NXKI
     Dosage: UNK
  7. PERTUZUMAB [Suspect]
     Active Substance: PERTUZUMAB
     Indication: HER2 positive breast cancer
     Dosage: LOADING DOSE OF 840 MG INTRAVENOUSLY ON DAY 1 OF CYCLE 1, FOLLOWED BY 420 MG Q3W
     Route: 042
     Dates: start: 20220915, end: 20220915
  8. PERTUZUMAB [Suspect]
     Active Substance: PERTUZUMAB
     Dosage: LOADING DOSE OF 840 MG INTRAVENOUSLY ON DAY 1 OF CYCLE 1, FOLLOWED BY 420 MG Q3W
     Route: 042
     Dates: start: 20221006, end: 20221006
  9. PERTUZUMAB [Suspect]
     Active Substance: PERTUZUMAB
     Dosage: LOADING DOSE OF 840 MG INTRAVENOUSLY ON DAY 1 OF CYCLE 1, FOLLOWED BY 420 MG Q3W
     Route: 042
     Dates: start: 20221027, end: 20221027
  10. PERTUZUMAB [Suspect]
     Active Substance: PERTUZUMAB
     Dosage: LOADING DOSE OF 840 MG INTRAVENOUSLY ON DAY 1 OF CYCLE 1, FOLLOWED BY 420 MG Q3W
     Route: 042
     Dates: start: 20221117, end: 20221117
  11. PERTUZUMAB [Suspect]
     Active Substance: PERTUZUMAB
     Dosage: LOADING DOSE OF 840 MG INTRAVENOUSLY ON DAY 1 OF CYCLE 1, FOLLOWED BY 420 MG Q3W
     Route: 042
     Dates: start: 20221208, end: 20221208
  12. AMOXICILLIN [Suspect]
     Active Substance: AMOXICILLIN
     Indication: HER2 positive breast cancer
     Dosage: UNK
     Route: 065
  13. CLARITHROMYCIN [Suspect]
     Active Substance: CLARITHROMYCIN
     Indication: HER2 positive breast cancer
     Dosage: UNK
     Route: 065
  14. MIRTAZAPINE [Suspect]
     Active Substance: MIRTAZAPINE
     Indication: HER2 positive breast cancer
     Dosage: UNK
     Route: 065
  15. TRANSMETIL [ADEMETIONINE] [Concomitant]
     Indication: Hepatic enzyme increased
     Dosage: 500 MG, BID
     Route: 048
     Dates: start: 20220915
  16. URSODIOL [Concomitant]
     Active Substance: URSODIOL
     Indication: Hepatic enzyme increased
     Dosage: 300 MG, BID
     Route: 048
     Dates: start: 20220915

REACTIONS (1)
  - Drug-induced liver injury [Not Recovered/Not Resolved]

NARRATIVE: CASE EVENT DATE: 20230126
